FAERS Safety Report 21439779 (Version 2)
Quarter: 2022Q4

REPORT INFORMATION
  Report Type: Spontaneous
  Country: US (occurrence: US)
  Receive Date: 20221011
  Receipt Date: 20221027
  Transmission Date: 20230113
  Serious: Yes (Hospitalization)
  Sender: FDA-Public Use
  Company Number: US-PARATEK PHARMACEUTICALS, INC.-2022PTK00312

PATIENT
  Age: 62 Year
  Sex: Male
  Weight: 124.72 kg

DRUGS (5)
  1. NUZYRA [Suspect]
     Active Substance: OMADACYCLINE
     Indication: Wound infection staphylococcal
     Dosage: 450 MG, 1X/DAY
     Route: 048
     Dates: start: 20220922, end: 20220923
  2. NUZYRA [Suspect]
     Active Substance: OMADACYCLINE
     Indication: Infection prophylaxis
  3. UNSPECIFIED DIABETES MEDICATIONS [Concomitant]
  4. UNSPECIFIED INGREDIENT [Concomitant]
     Active Substance: UNSPECIFIED INGREDIENT
  5. UNSPECIFIED CHOLESTEROL MEDICATIONS [Concomitant]

REACTIONS (2)
  - Wound infection staphylococcal [Recovering/Resolving]
  - Product dose omission issue [Recovered/Resolved]

NARRATIVE: CASE EVENT DATE: 20220924
